FAERS Safety Report 13114269 (Version 1)
Quarter: 2017Q1

REPORT INFORMATION
  Report Type: Spontaneous
  Country: DE (occurrence: DE)
  Receive Date: 20170113
  Receipt Date: 20170113
  Transmission Date: 20170428
  Serious: Yes (Other)
  Sender: FDA-Public Use
  Company Number: GXKR2017DE000525

PATIENT

DRUGS (2)
  1. FOLIC ACID. [Concomitant]
     Active Substance: FOLIC ACID
     Indication: VITAMIN SUPPLEMENTATION
     Dosage: 0.4 [MG/D ]
     Route: 064
     Dates: start: 20160129, end: 20160811
  2. TOPIRAMATE. [Suspect]
     Active Substance: TOPIRAMATE
     Indication: EPILEPSY
     Dosage: 25 MG, INITIALLY 4 TIMES PER DAY, FROM GW 29+6: 5 TIMES PER DAY
     Route: 064
     Dates: start: 20151103, end: 20160811

REACTIONS (2)
  - Microcephaly [Unknown]
  - Small for dates baby [Unknown]

NARRATIVE: CASE EVENT DATE: 20160811
